FAERS Safety Report 5331080-7 (Version None)
Quarter: 2007Q2

REPORT INFORMATION
  Report Type: 
  Country: None (occurrence: None)
  Receive Date: 20070516
  Receipt Date: 20070503
  Transmission Date: 20071010
  Serious: Yes (Other)
  Sender: FDA-Public Use
  Company Number: 0700504-0000481

PATIENT

DRUGS (1)
  1. INDOCIN [Suspect]
     Indication: EXTRASKELETAL OSSIFICATION
     Dosage: 100 MG;TID;

REACTIONS (1)
  - CEREBRAL ISCHAEMIA [None]
